FAERS Safety Report 24658632 (Version 1)
Quarter: 2024Q4

REPORT INFORMATION
  Report Type: Spontaneous
  Country: CN (occurrence: CN)
  Receive Date: 20241125
  Receipt Date: 20241125
  Transmission Date: 20250115
  Serious: Yes (Death, Hospitalization)
  Sender: JIANGSU HENGRUI MEDICINE CO., LTD.
  Company Number: CN-Jiangsu Hengrui Medicine Co., Ltd.-2165835

PATIENT
  Age: 70 Year
  Sex: Male
  Weight: 62 kg

DRUGS (4)
  1. PACLITAXEL [Suspect]
     Active Substance: PACLITAXEL
     Indication: Oesophageal squamous cell carcinoma
     Dates: start: 20240512, end: 20240602
  2. CAMRELIZUMAB [Suspect]
     Active Substance: CAMRELIZUMAB
     Dates: start: 20240512, end: 20240602
  3. CARBOPLATIN [Suspect]
     Active Substance: CARBOPLATIN
     Dates: start: 20240512, end: 20240602
  4. RIVOCERANIB MESYLATE [Suspect]
     Active Substance: RIVOCERANIB MESYLATE
     Dates: start: 20240512, end: 20240617

REACTIONS (1)
  - Pneumonia [Fatal]

NARRATIVE: CASE EVENT DATE: 20240618
